FAERS Safety Report 7366503-5 (Version None)
Quarter: 2011Q1

REPORT INFORMATION
  Report Type: 
  Country: None (occurrence: None)
  Receive Date: 20110322
  Receipt Date: 20110312
  Transmission Date: 20110831
  Serious: Yes (Other)
  Sender: FDA-Public Use
  Company Number: DE-BAYER-2010-006258

PATIENT
  Sex: Female
  Weight: 82 kg

DRUGS (2)
  1. MIRENA [Suspect]
     Indication: CONTRACEPTION
     Dosage: 20 ?G/D, CONT
     Route: 015
     Dates: start: 20051108, end: 20110209
  2. MIRENA [Suspect]
     Indication: MENSTRUAL DISORDER

REACTIONS (2)
  - DEVICE DISLOCATION [None]
  - COMPLICATION OF DEVICE REMOVAL [None]
